FAERS Safety Report 6349380-0 (Version None)
Quarter: 2009Q3

REPORT INFORMATION
  Report Type: 
  Country: None (occurrence: None)
  Receive Date: 20090911
  Receipt Date: 20090902
  Transmission Date: 20100115
  Serious: No
  Sender: FDA-Public Use
  Company Number: US-B.I. PHARMACEUTICALS,INC./RIDGEFIELD-2009-BP-06943BP

PATIENT
  Age: 78 Year
  Sex: Female

DRUGS (8)
  1. AGGRENOX [Suspect]
     Indication: CEREBROVASCULAR ACCIDENT
     Route: 048
     Dates: start: 20090417
  2. ENALAPRIL MALEATE [Suspect]
     Indication: BLOOD PRESSURE INCREASED
     Dosage: 20 MG
     Route: 048
  3. ZOCOR [Concomitant]
     Indication: BLOOD CHOLESTEROL INCREASED
     Dosage: 10 MG
  4. ADVAIR HFA [Concomitant]
     Indication: ASTHMA
     Route: 055
  5. HYDROCHLOROTHIAZIDE [Concomitant]
     Indication: BLOOD PRESSURE INCREASED
     Dosage: 25 MG
     Route: 048
  6. ALBUTEROL [Concomitant]
     Indication: ASTHMA
     Route: 055
  7. ASPIRIN [Concomitant]
     Dosage: 81 MG
     Route: 048
  8. SIMVASTATIN [Concomitant]
     Dosage: 10 MG
     Route: 048

REACTIONS (3)
  - DYSPHONIA [None]
  - MALAISE [None]
  - NAUSEA [None]
